FAERS Safety Report 5604341-1 (Version None)
Quarter: 2008Q1

REPORT INFORMATION
  Report Type: 
  Country: None (occurrence: None)
  Receive Date: 20080123
  Receipt Date: 20080123
  Transmission Date: 20080703
  Serious: Yes (Other)
  Sender: FDA-Public Use
  Company Number: None

PATIENT
  Sex: Female

DRUGS (1)
  1. NICORETTE [Suspect]
     Indication: SMOKING CESSATION THERAPY
     Dosage: 1 PIECE TEN TIMES DAY PO
     Route: 048
     Dates: start: 20080105, end: 20080106

REACTIONS (3)
  - ORAL DISORDER [None]
  - ORAL PAIN [None]
  - TONGUE DISORDER [None]
